FAERS Safety Report 5045261-3 (Version None)
Quarter: 2006Q3

REPORT INFORMATION
  Report Type: 
  Country: None (occurrence: None)
  Receive Date: 20060707
  Receipt Date: 20060629
  Transmission Date: 20061208
  Serious: Yes (Hospitalization)
  Sender: FDA-Public Use
  Company Number: FR-GILEAD-2006-0009822

PATIENT
  Age: 37 Year
  Sex: Male

DRUGS (9)
  1. VIREAD [Suspect]
     Route: 048
     Dates: start: 20050131, end: 20060214
  2. CRIXIVAN [Suspect]
     Route: 048
     Dates: start: 20041015, end: 20060214
  3. NORVIR [Suspect]
     Route: 048
     Dates: end: 20060214
  4. EPIVIR [Suspect]
     Route: 048
     Dates: end: 20060214
  5. NOVOMIX [Concomitant]
  6. AVLOCARDYL [Concomitant]
  7. AERIUS [Concomitant]
  8. MIANSERINE [Concomitant]
  9. FORTIMEL [Concomitant]

REACTIONS (15)
  - ALPHA 1 GLOBULIN INCREASED [None]
  - BLOOD BICARBONATE DECREASED [None]
  - CANDIDA SEROLOGY POSITIVE [None]
  - DELIRIUM FEBRILE [None]
  - GENERAL PHYSICAL HEALTH DETERIORATION [None]
  - HYPERGAMMAGLOBULINAEMIA [None]
  - HYPOALBUMINAEMIA [None]
  - HYPOCALCAEMIA [None]
  - HYPOCAPNIA [None]
  - HYPOCHLORAEMIA [None]
  - HYPOXIA [None]
  - LEUKOCYTOSIS [None]
  - METABOLIC ACIDOSIS [None]
  - RENAL TUBULAR DISORDER [None]
  - SEPSIS [None]
